FAERS Safety Report 7721202-2 (Version None)
Quarter: 2011Q3

REPORT INFORMATION
  Report Type: 
  Country: None (occurrence: None)
  Receive Date: 20110831
  Receipt Date: 20110824
  Transmission Date: 20111222
  Serious: Yes (Life-Threatening, Hospitalization)
  Sender: FDA-Public Use
  Company Number: DE-ALLERGAN-200200001

PATIENT
  Age: 24 Month
  Sex: Male
  Weight: 12.1 kg

DRUGS (1)
  1. ALPHAGANA? 0,2 % M/V (2MG/ML) AUGENTROPFEN [Suspect]
     Indication: ACCIDENTAL EXPOSURE
     Dosage: UNK
     Route: 048
     Dates: start: 20020102, end: 20020102

REACTIONS (4)
  - HYPOTONIA [None]
  - BRADYCARDIA [None]
  - ACCIDENTAL EXPOSURE [None]
  - SOMNOLENCE [None]
